FAERS Safety Report 9806504 (Version 1)
Quarter: 2014Q1

REPORT INFORMATION
  Report Type: Spontaneous
  Country: US (occurrence: US)
  Receive Date: 20140109
  Receipt Date: 20140109
  Transmission Date: 20141002
  Serious: Yes (Hospitalization)
  Sender: FDA-Public Use
  Company Number: US-MYLANLABS-2013S1026235

PATIENT
  Age: 84 Year
  Sex: Male
  Weight: 65.32 kg

DRUGS (5)
  1. ALLOPURINOL [Suspect]
     Route: 048
     Dates: end: 2013
  2. VFEND [Suspect]
     Indication: FUNGAL INFECTION
     Dates: start: 201304
  3. ULORIC [Suspect]
     Dates: end: 2013
  4. VANCOMYCIN [Concomitant]
     Indication: LEUKAEMIA
  5. CHEMOTHERAPEUTICS [Concomitant]
     Indication: LEUKAEMIA

REACTIONS (5)
  - Drug hypersensitivity [Not Recovered/Not Resolved]
  - Jaundice [Not Recovered/Not Resolved]
  - Hepatic enzyme increased [Recovered/Resolved]
  - Rash [Recovered/Resolved]
  - Drug intolerance [Not Recovered/Not Resolved]
